FAERS Safety Report 18997897 (Version 1)
Quarter: 2021Q1

REPORT INFORMATION
  Report Type: Spontaneous
  Country: US (occurrence: US)
  Receive Date: 20210311
  Receipt Date: 20210311
  Transmission Date: 20210420
  Serious: No
  Sender: FDA-Public Use
  Company Number: US-BAYER-2021-102812

PATIENT

DRUGS (4)
  1. ALEVE [Suspect]
     Active Substance: NAPROXEN SODIUM
     Indication: FIBROMYALGIA
  2. ALEVE [Suspect]
     Active Substance: NAPROXEN SODIUM
     Indication: PAIN
  3. ALEVE [Suspect]
     Active Substance: NAPROXEN SODIUM
     Indication: SLEEP DISORDER THERAPY
     Dosage: 2 DF
  4. ALEVE [Suspect]
     Active Substance: NAPROXEN SODIUM
     Indication: INFLAMMATION
     Dosage: 1 DF, HS

REACTIONS (1)
  - Drug effective for unapproved indication [Unknown]
